FAERS Safety Report 16707443 (Version 1)
Quarter: 2019Q3

REPORT INFORMATION
  Report Type: Spontaneous
  Country: US (occurrence: US)
  Receive Date: 20190630
  Receipt Date: 20190630
  Transmission Date: 20191004
  Serious: Yes (Life-Threatening, Other)
  Sender: FDA-Public Use
  Company Number: None

PATIENT
  Age: 26 Year
  Sex: Male
  Weight: 70 kg

DRUGS (2)
  1. TEPRSOL (L40 LACTIC COMPOUND) [Suspect]
     Active Substance: LACTIC ACID
  2. TERPSOL (L40 LACTIC COMPOUND) [Suspect]
     Active Substance: LACTIC ACID

REACTIONS (3)
  - Post procedural complication [None]
  - Tissue injury [None]
  - Scar [None]

NARRATIVE: CASE EVENT DATE: 20171025
